FAERS Safety Report 6932284-X (Version None)
Quarter: 2010Q3

REPORT INFORMATION
  Report Type: 
  Country: None (occurrence: None)
  Receive Date: 20100813
  Receipt Date: 20100521
  Transmission Date: 20110219
  Serious: No
  Sender: FDA-Public Use
  Company Number: 1000013993

PATIENT
  Age: 52 Year
  Sex: Female

DRUGS (6)
  1. SAVELLA [Suspect]
     Indication: ANXIETY
     Dosage: 25 MG (12.5 MG,2 IN 1 D), ORAL; 25 MG (12.5 MG,2 IN 1 D), ORAL; 50 MG (25 MG,2 IN 1 D), ORAL
     Route: 048
     Dates: start: 20100401, end: 20100401
  2. SAVELLA [Suspect]
     Indication: ANXIETY
     Dosage: 25 MG (12.5 MG,2 IN 1 D), ORAL; 25 MG (12.5 MG,2 IN 1 D), ORAL; 50 MG (25 MG,2 IN 1 D), ORAL
     Route: 048
     Dates: start: 20100401, end: 20100401
  3. SAVELLA [Suspect]
     Indication: ANXIETY
     Dosage: 25 MG (12.5 MG,2 IN 1 D), ORAL; 25 MG (12.5 MG,2 IN 1 D), ORAL; 50 MG (25 MG,2 IN 1 D), ORAL
     Route: 048
     Dates: start: 20100401, end: 20100401
  4. SAVELLA [Suspect]
     Indication: ANXIETY
     Dosage: 100 MG (50 MG,2 IN 1 D), ORAL
     Route: 048
     Dates: start: 20100401
  5. SAVELLA [Suspect]
     Dosage: 50 MG (25 MG,2 IN 1 D), ORAL
     Route: 048
  6. COUMADIN [Concomitant]

REACTIONS (1)
  - PAROSMIA [None]
